FAERS Safety Report 25445216 (Version 1)
Quarter: 2025Q2

REPORT INFORMATION
  Report Type: Spontaneous
  Country: IN (occurrence: None)
  Receive Date: 20250617
  Receipt Date: 20250617
  Transmission Date: 20250717
  Serious: Yes (Hospitalization)
  Sender: SUPERNUS PHARMACEUTICALS, INC.
  Company Number: IN-SUPERNUS Pharmaceuticals, Inc.-SUP202506-002032

PATIENT
  Age: 65 Year
  Sex: Male

DRUGS (2)
  1. OXCARBAZEPINE [Suspect]
     Active Substance: OXCARBAZEPINE
     Indication: Bipolar disorder
  2. LITHIUM [Suspect]
     Active Substance: LITHIUM
     Indication: Bipolar disorder

REACTIONS (4)
  - Hyperammonaemia [Recovering/Resolving]
  - Renal impairment [Recovering/Resolving]
  - Condition aggravated [Recovering/Resolving]
  - Product use in unapproved indication [Unknown]
